FAERS Safety Report 25153759 (Version 1)
Quarter: 2025Q2

REPORT INFORMATION
  Report Type: Other
  Country: CA (occurrence: CA)
  Receive Date: 20250403
  Receipt Date: 20250403
  Transmission Date: 20250716
  Serious: Yes (Death, Other)
  Sender: APOTEX
  Company Number: CA-APOTEX-2025AP003958

PATIENT
  Age: 52 Year
  Sex: Male

DRUGS (2)
  1. LITHIUM [Suspect]
     Active Substance: LITHIUM
     Indication: Schizophrenia
     Dosage: 900 MILLIGRAM, BID
     Route: 065
  2. LITHIUM [Suspect]
     Active Substance: LITHIUM
     Indication: Bipolar disorder

REACTIONS (14)
  - Cardiac arrest [Fatal]
  - Depressed level of consciousness [Fatal]
  - Hyperkalaemia [Fatal]
  - Renal failure [Fatal]
  - Hyperglycaemic hyperosmolar nonketotic syndrome [Fatal]
  - Hypoxia [Fatal]
  - Agitation [Fatal]
  - Antipsychotic drug level below therapeutic [Fatal]
  - Confusional state [Fatal]
  - Dysarthria [Fatal]
  - Endotracheal intubation [Fatal]
  - Gait inability [Fatal]
  - Hypernatraemia [Fatal]
  - Nephropathy [Fatal]
